FAERS Safety Report 7963357-0 (Version None)
Quarter: 2011Q4

REPORT INFORMATION
  Report Type: 
  Country: None (occurrence: None)
  Receive Date: 20111122
  Receipt Date: 20110801
  Transmission Date: 20120403
  Serious: Yes (Other)
  Sender: FDA-Public Use
  Company Number: PHHY2011US63650

PATIENT
  Age: 51 Year
  Sex: Female

DRUGS (8)
  1. CALCIUM CARBONATE [Concomitant]
  2. LEXAPRO [Concomitant]
  3. GILENYA [Suspect]
     Indication: MULTIPLE SCLEROSIS RELAPSE
     Dosage: 0.5 MG, QD, ORAL
     Route: 048
     Dates: start: 20110217
  4. PROVIGIL [Concomitant]
  5. ROPINIROLE [Concomitant]
  6. MAGNESIUM (MAGNESIUM) [Concomitant]
  7. CIPRO [Concomitant]
  8. VITAMIN D [Concomitant]

REACTIONS (1)
  - CD4 LYMPHOCYTES DECREASED [None]
